FAERS Safety Report 21571031 (Version 1)
Quarter: 2022Q4

REPORT INFORMATION
  Report Type: Spontaneous
  Country: IN (occurrence: IN)
  Receive Date: 20221109
  Receipt Date: 20221109
  Transmission Date: 20230113
  Serious: Yes (Other)
  Sender: FDA-Public Use
  Company Number: IN-STRIDES ARCOLAB LIMITED-2022SP014566

PATIENT
  Age: 60 Year
  Sex: Female

DRUGS (2)
  1. PREDNISOLONE [Suspect]
     Active Substance: PREDNISOLONE
     Indication: COVID-19 pneumonia
     Dosage: UNK
     Route: 065
  2. OXYGEN [Concomitant]
     Active Substance: OXYGEN
     Indication: COVID-19 pneumonia
     Dosage: UNK, (HIGH FLOW)
     Route: 065

REACTIONS (6)
  - Hydroureter [Recovered/Resolved]
  - Hydronephrosis [Recovered/Resolved]
  - Type 2 diabetes mellitus [Recovered/Resolved]
  - Mucormycosis [Recovered/Resolved]
  - Pneumonia viral [Unknown]
  - Off label use [Unknown]
